FAERS Safety Report 25816549 (Version 1)
Quarter: 2025Q3

REPORT INFORMATION
  Report Type: Spontaneous
  Country: US (occurrence: US)
  Receive Date: 20250918
  Receipt Date: 20250918
  Transmission Date: 20251020
  Serious: No
  Sender: GLAXOSMITHKLINE
  Company Number: US-GSK-US2025106779

PATIENT

DRUGS (2)
  1. TRELEGY ELLIPTA [Suspect]
     Active Substance: FLUTICASONE FUROATE\UMECLIDINIUM BROMIDE\VILANTEROL TRIFENATATE
     Indication: Chronic obstructive pulmonary disease
  2. ARNUITY ELLIPTA [4]
     Active Substance: FLUTICASONE FUROATE
     Indication: Chronic obstructive pulmonary disease

REACTIONS (4)
  - Nasopharyngitis [Unknown]
  - Chills [Unknown]
  - Productive cough [Unknown]
  - Product prescribing issue [Unknown]
